FAERS Safety Report 7955615-0 (Version None)
Quarter: 2011Q4

REPORT INFORMATION
  Report Type: 
  Country: None (occurrence: None)
  Receive Date: 20111202
  Receipt Date: 20111128
  Transmission Date: 20120403
  Serious: Yes (Life-Threatening)
  Sender: FDA-Public Use
  Company Number: ZA-ASTRAZENECA-2011SE72079

PATIENT
  Sex: Female

DRUGS (3)
  1. NAROPIN [Suspect]
     Indication: NERVE BLOCK
     Route: 053
  2. MIDAZOLAM HCL [Concomitant]
  3. HYALASE [Concomitant]

REACTIONS (2)
  - BLOOD PRESSURE ABNORMAL [None]
  - ANAPHYLACTIC SHOCK [None]
